FAERS Safety Report 9989737 (Version 1)
Quarter: 2013Q4

REPORT INFORMATION
  Report Type: Spontaneous
  Country: US (occurrence: None)
  Receive Date: 20131107
  Receipt Date: 20131107
  Transmission Date: 20140711
  Serious: No
  Sender: FDA-Public Use
  Company Number: A1042816A

PATIENT
  Age: 35 Year
  Sex: Male
  Weight: 83.42 kg

DRUGS (1)
  1. CALCIUM CARBONATE [Suspect]
     Indication: MINERAL SUPPLEMENTATION
     Route: 048
     Dates: start: 20130904

REACTIONS (13)
  - Anaphylactic shock [None]
  - Choking [None]
  - Dyspnoea [None]
  - Cough [None]
  - Eye swelling [None]
  - Lacrimation increased [None]
  - Dysphagia [None]
  - Vomiting [None]
  - Dizziness [None]
  - Swelling face [None]
  - Local swelling [None]
  - Hypersensitivity [None]
  - Dizziness [None]
